FAERS Safety Report 10990498 (Version 1)
Quarter: 2015Q1

REPORT INFORMATION
  Report Type: Spontaneous
  Country: US (occurrence: None)
  Receive Date: 20150330
  Receipt Date: 20150330
  Transmission Date: 20150721
  Serious: Yes (Hospitalization, Other)
  Sender: FDA-Public Use
  Company Number: US-2015-10824

PATIENT
  Age: 49 Year
  Sex: Female

DRUGS (10)
  1. ABILIFY [Suspect]
     Active Substance: ARIPIPRAZOLE
     Indication: BIPOLAR DISORDER
     Route: 048
     Dates: start: 20140908
  2. LYRICA [Concomitant]
     Active Substance: PREGABALIN
  3. TRAZODONE [Concomitant]
     Active Substance: TRAZODONE HYDROCHLORIDE
  4. TOPIRAMATE (TOPIRAMATE) [Concomitant]
     Active Substance: TOPIRAMATE
  5. CLONIDINE. [Concomitant]
     Active Substance: CLONIDINE
  6. CELEBREX [Concomitant]
     Active Substance: CELECOXIB
  7. EFFEXOR [Concomitant]
     Active Substance: VENLAFAXINE HYDROCHLORIDE
  8. ABILIFY MAINTENA [Suspect]
     Active Substance: ARIPIPRAZOLE
     Indication: BIPOLAR DISORDER
     Dosage: 400 MG MILLIGRAM (S) IM (DEPOT)
     Route: 030
     Dates: start: 20131023, end: 20140811
  9. BENZTROPINE (BENZTROPINE MESILATE) [Concomitant]
  10. SYNTHROID [Concomitant]
     Active Substance: LEVOTHYROXINE SODIUM

REACTIONS (4)
  - Drug ineffective [None]
  - Suicide attempt [None]
  - Product use issue [None]
  - Treatment noncompliance [None]
